FAERS Safety Report 6764496-2 (Version None)
Quarter: 2010Q2

REPORT INFORMATION
  Report Type: 
  Country: None (occurrence: None)
  Receive Date: 20100610
  Receipt Date: 20100608
  Transmission Date: 20101027
  Serious: Yes (Death)
  Sender: FDA-Public Use
  Company Number: US-ABBOTT-10P-163-0649547-00

PATIENT
  Sex: Male
  Weight: 52.21 kg

DRUGS (23)
  1. ZEMPLAR [Suspect]
     Indication: NEPHROPATHY
     Route: 048
     Dates: start: 20090101, end: 20100424
  2. ZEMPLAR [Suspect]
     Indication: RENAL FAILURE
  3. OXYGEN [Concomitant]
     Indication: OXYGEN SUPPLEMENTATION
  4. REMICADE [Concomitant]
     Indication: RHEUMATOID ARTHRITIS
     Dates: end: 20100424
  5. METHOTREXATE [Concomitant]
     Indication: RHEUMATOID ARTHRITIS
  6. OXYCODONE [Concomitant]
     Indication: ARTHRALGIA
     Route: 048
     Dates: end: 20100424
  7. ASPIRIN [Concomitant]
     Indication: CARDIAC DISORDER
     Route: 048
     Dates: end: 20100424
  8. COREG [Concomitant]
     Indication: CARDIAC DISORDER
     Route: 048
     Dates: end: 20100424
  9. REMERON [Concomitant]
     Indication: DRUG USE FOR UNKNOWN INDICATION
     Route: 048
     Dates: end: 20100424
  10. CELEXA [Concomitant]
     Indication: DRUG USE FOR UNKNOWN INDICATION
     Dosage: 40 MG X 1/2 DOSAGE FORM
     Route: 048
     Dates: end: 20100424
  11. COLACE [Concomitant]
     Indication: DRUG USE FOR UNKNOWN INDICATION
     Route: 048
     Dates: end: 20100424
  12. DIGOXIN [Concomitant]
     Indication: CARDIAC DISORDER
     Dosage: 1 PILL ON WED AND ON SUN
     Dates: end: 20100424
  13. RENAL CAPS [Concomitant]
     Indication: RENAL FAILURE
     Route: 048
     Dates: end: 20100424
  14. PHENERGAN [Concomitant]
     Indication: VOMITING
     Route: 048
  15. PHENERGAN [Concomitant]
     Route: 061
  16. AMIODARONE [Concomitant]
     Indication: CARDIAC DISORDER
     Dates: end: 20100424
  17. PREDNISONE [Concomitant]
     Indication: RHEUMATOID ARTHRITIS
     Route: 048
     Dates: end: 20100424
  18. PRILOSEC [Concomitant]
     Indication: DRUG USE FOR UNKNOWN INDICATION
     Route: 048
     Dates: end: 20100424
  19. SENNA [Concomitant]
     Indication: DRUG USE FOR UNKNOWN INDICATION
     Route: 048
     Dates: end: 20100424
  20. DUONEB [Concomitant]
     Indication: CHRONIC OBSTRUCTIVE PULMONARY DISEASE
     Dosage: EVERY 4 HOURS AS NEEDED
     Route: 055
  21. GUAIFENESIN [Concomitant]
     Indication: DRUG USE FOR UNKNOWN INDICATION
     Dosage: EVERY 4 HOURS AS NEEDED
     Dates: end: 20100424
  22. COMPAZINE [Concomitant]
     Indication: NAUSEA
     Dates: end: 20100424
  23. NIACIN [Concomitant]
     Indication: DRUG USE FOR UNKNOWN INDICATION
     Route: 048
     Dates: end: 20100424

REACTIONS (2)
  - HAEMODIALYSIS-INDUCED SYMPTOM [None]
  - RENAL FAILURE CHRONIC [None]
